FAERS Safety Report 9486327 (Version 1)
Quarter: 2013Q3

REPORT INFORMATION
  Report Type: Spontaneous
  Country: US (occurrence: US)
  Receive Date: 20130829
  Receipt Date: 20130829
  Transmission Date: 20140515
  Serious: No
  Sender: FDA-Public Use
  Company Number: US-PFIZER INC-2013247545

PATIENT
  Age: 78 Year
  Sex: Male
  Weight: 79.37 kg

DRUGS (1)
  1. LYRICA [Suspect]
     Indication: MUSCLE SPASMS
     Dosage: 75 MG, 2X/DAY
     Dates: start: 201308

REACTIONS (2)
  - Off label use [Unknown]
  - Drug ineffective for unapproved indication [Unknown]
